FAERS Safety Report 9365245 (Version 2)
Quarter: 2014Q3

REPORT INFORMATION
  Report Type: Spontaneous
  Country: US (occurrence: US)
  Receive Date: 20130625
  Receipt Date: 20140813
  Transmission Date: 20150326
  Serious: Yes (Hospitalization, Other)
  Sender: FDA-Public Use
  Company Number: US-009507513-1306USA011350

PATIENT
  Sex: Female
  Weight: 61 kg

DRUGS (1)
  1. NUVARING [Suspect]
     Active Substance: ETHINYL ESTRADIOL\ETONOGESTREL
     Indication: CONTRACEPTION
     Dosage: UNK
     Route: 067
     Dates: start: 201110

REACTIONS (17)
  - Asthenia [Unknown]
  - Therapeutic product ineffective [Unknown]
  - Pneumonia [Unknown]
  - Intervertebral disc protrusion [Unknown]
  - Pulmonary embolism [Unknown]
  - Pruritus [Unknown]
  - Pulmonary embolism [Not Recovered/Not Resolved]
  - Back pain [Unknown]
  - Pleural effusion [Unknown]
  - Gastroenteritis viral [Unknown]
  - Pelvic pain [Unknown]
  - Pulmonary endarterectomy [Unknown]
  - Pulmonary hypertension [Not Recovered/Not Resolved]
  - Troponin increased [Unknown]
  - Dilatation ventricular [Recovering/Resolving]
  - Adverse event [Unknown]
  - Vena cava filter insertion [Unknown]

NARRATIVE: CASE EVENT DATE: 201111
